FAERS Safety Report 21045909 (Version 1)
Quarter: 2022Q3

REPORT INFORMATION
  Report Type: Spontaneous
  Country: US (occurrence: US)
  Receive Date: 20220706
  Receipt Date: 20220706
  Transmission Date: 20221026
  Serious: Yes (Other)
  Sender: FDA-Public Use
  Company Number: US-BRISTOL-MYERS SQUIBB COMPANY-2022-063407

PATIENT
  Age: 70 Year
  Sex: Male
  Weight: 112.5 kg

DRUGS (1)
  1. POMALYST [Suspect]
     Active Substance: POMALIDOMIDE
     Indication: Plasma cell myeloma
     Dosage: DOSE : 1MG;     FREQ : ONCE A DAY, 21 DAYS ON AND 7 DAYS OFF
     Route: 048

REACTIONS (1)
  - Drug ineffective [Unknown]
